FAERS Safety Report 6482344-5 (Version None)
Quarter: 2009Q4

REPORT INFORMATION
  Report Type: 
  Country: None (occurrence: None)
  Receive Date: 20091208
  Receipt Date: 20090529
  Transmission Date: 20100525
  Serious: No
  Sender: FDA-Public Use
  Company Number: US-AMGEN-TCS342473

PATIENT
  Sex: Female
  Weight: 49.9 kg

DRUGS (4)
  1. ENBREL [Suspect]
     Indication: RHEUMATOID ARTHRITIS
     Route: 058
     Dates: start: 20080201
  2. METHOTREXATE [Suspect]
  3. PREDNISONE [Concomitant]
  4. PLAQUENIL [Concomitant]
     Dates: start: 20040101

REACTIONS (2)
  - LIVER FUNCTION TEST ABNORMAL [None]
  - NASOPHARYNGITIS [None]
